FAERS Safety Report 5147186-1 (Version None)
Quarter: 2006Q4

REPORT INFORMATION
  Report Type: 
  Country: None (occurrence: None)
  Receive Date: 20061103
  Receipt Date: 20061027
  Transmission Date: 20070319
  Serious: Yes (Hospitalization, Other)
  Sender: FDA-Public Use
  Company Number: HQWYE738330OCT06

PATIENT
  Age: 27 Year
  Sex: Male

DRUGS (2)
  1. ADVIL [Suspect]
     Indication: TONSILLITIS
     Dosage: 2 DOSE 1X PER 1 DAY ORAL
     Route: 048
     Dates: start: 20060922, end: 20060927
  2. ZITHROMAX [Suspect]
     Indication: TONSILLITIS
     Dosage: ORAL
     Route: 048
     Dates: start: 20060922, end: 20060924

REACTIONS (5)
  - BACK PAIN [None]
  - NEPHRITIS INTERSTITIAL [None]
  - PYREXIA [None]
  - RENAL FAILURE ACUTE [None]
  - WHITE BLOOD CELLS URINE POSITIVE [None]
